FAERS Safety Report 15621700 (Version 1)
Quarter: 2018Q4

REPORT INFORMATION
  Report Type: Spontaneous
  Country: TR (occurrence: TR)
  Receive Date: 20181115
  Receipt Date: 20181115
  Transmission Date: 20190205
  Serious: Yes (Hospitalization)
  Sender: FDA-Public Use
  Company Number: TR-TEVA-2018-TR-974002

PATIENT
  Age: 11 Year
  Sex: Male

DRUGS (8)
  1. METHYLPREDNISOLONE. [Suspect]
     Active Substance: METHYLPREDNISOLONE
     Dosage: 30 MG/KG/DOSE
     Route: 065
  2. METHYLPREDNISOLONE. [Suspect]
     Active Substance: METHYLPREDNISOLONE
     Route: 048
  3. WARFARIN [Concomitant]
     Active Substance: WARFARIN
     Indication: CEREBRAL ARTERY THROMBOSIS
     Route: 048
  4. MANNITOL. [Concomitant]
     Active Substance: MANNITOL
     Route: 065
  5. METHYLPREDNISOLONE. [Suspect]
     Active Substance: METHYLPREDNISOLONE
     Indication: NEPHROTIC SYNDROME
     Dosage: 2 MG/KG DAILY; FURTHER ADMINISTERED AS 30 MG/KG/DOSE
     Route: 065
  6. ACETYLSALICYLIC ACID [Concomitant]
     Active Substance: ASPIRIN
     Indication: CEREBRAL ARTERY THROMBOSIS
     Dosage: 100 MILLIGRAM DAILY;
     Route: 065
  7. FUROSEMIDE. [Suspect]
     Active Substance: FUROSEMIDE
     Indication: NEPHROTIC SYNDROME
     Dosage: 1 MG/KG DAILY;
     Route: 065
  8. CYCLOPHOSPHAMIDE. [Concomitant]
     Active Substance: CYCLOPHOSPHAMIDE
     Indication: NEPHROTIC SYNDROME
     Route: 065

REACTIONS (12)
  - Cerebral artery thrombosis [Recovering/Resolving]
  - Speech disorder [Unknown]
  - Haemorrhagic transformation stroke [Unknown]
  - Infarction [Recovering/Resolving]
  - Facial paralysis [Not Recovered/Not Resolved]
  - Brain oedema [Unknown]
  - Loss of consciousness [Recovered/Resolved]
  - Drug ineffective [Unknown]
  - Brain midline shift [Unknown]
  - Blood pressure increased [Unknown]
  - Hemiplegia [Recovering/Resolving]
  - Pupils unequal [Recovering/Resolving]
